FAERS Safety Report 8486510-9 (Version None)
Quarter: 2012Q3

REPORT INFORMATION
  Report Type: 
  Country: None (occurrence: None)
  Receive Date: 20120703
  Receipt Date: 20120628
  Transmission Date: 20120928
  Serious: Yes (Other)
  Sender: FDA-Public Use
  Company Number: US-PFIZER INC-2012156207

PATIENT
  Sex: Male
  Weight: 98.86 kg

DRUGS (1)
  1. LEVOXYL [Suspect]
     Indication: HYPOTHYROIDISM
     Dosage: 112 UG, 1X/DAY
     Route: 048

REACTIONS (3)
  - COGNITIVE DISORDER [None]
  - WEIGHT INCREASED [None]
  - SLUGGISHNESS [None]
